FAERS Safety Report 7978851-6 (Version None)
Quarter: 2011Q4

REPORT INFORMATION
  Report Type: 
  Country: None (occurrence: None)
  Receive Date: 20111214
  Receipt Date: 20111207
  Transmission Date: 20120403
  Serious: Yes (Hospitalization, Other)
  Sender: FDA-Public Use
  Company Number: AU-PFIZER INC-2011291390

PATIENT
  Age: 56 Year
  Sex: Female

DRUGS (6)
  1. OMEPRAZOLE [Suspect]
     Indication: COLITIS
  2. CELECOXIB [Suspect]
     Indication: RHEUMATOID ARTHRITIS
     Dosage: 200 MG, 1X/DAY
     Route: 048
     Dates: start: 20000218
  3. ROFECOXIB [Suspect]
     Indication: RHEUMATOID ARTHRITIS
     Dosage: 50 MG, 1X/DAY
     Route: 048
     Dates: start: 20000501, end: 20000607
  4. OMEPRAZOLE [Suspect]
     Indication: GASTROENTERITIS
     Dosage: 20 MG, 1X/DAY
     Route: 048
     Dates: start: 20000201, end: 20000607
  5. METHOTREXATE SODIUM [Suspect]
     Indication: ARTHRITIS
     Dosage: 7.5 MG, 1X/DAY
     Route: 048
     Dates: start: 20000217, end: 20000707
  6. ESTROGENS CONJUGATED [Concomitant]
     Dosage: UNK
     Dates: start: 19940101

REACTIONS (8)
  - TUBULOINTERSTITIAL NEPHRITIS [None]
  - NEPHROSCLEROSIS [None]
  - CELLULITIS [None]
  - AMYLOIDOSIS [None]
  - RHEUMATOID ARTHRITIS [None]
  - ALBUMINURIA [None]
  - RENAL FAILURE ACUTE [None]
  - DEEP VEIN THROMBOSIS [None]
